FAERS Safety Report 19441148 (Version 1)
Quarter: 2021Q2

REPORT INFORMATION
  Report Type: Spontaneous
  Country: US (occurrence: US)
  Receive Date: 20210617
  Receipt Date: 20210617
  Transmission Date: 20210717
  Serious: Yes (Death)
  Sender: FDA-Public Use
  Company Number: None

PATIENT
  Age: 57 Year
  Sex: Male

DRUGS (8)
  1. MIRALAX POW 3350 NF [Concomitant]
     Dates: start: 20180919
  2. CLARITIN?D TAB 5?120MG [Concomitant]
     Dates: start: 20180919
  3. PRILOSEC CAP 20MG [Concomitant]
     Dates: start: 20180919
  4. CABOMETYX [Suspect]
     Active Substance: CABOZANTINIB S-MALATE
     Indication: RENAL CANCER
     Route: 048
     Dates: start: 20210201
  5. LEVOTHYROXIN TAB 25MCG [Concomitant]
     Dates: start: 20210228
  6. ESCITALOPRAM TAB 10 MG [Concomitant]
     Dates: start: 20210314
  7. TAMSULOSIN CAP 0.4MG [Concomitant]
     Active Substance: TAMSULOSIN
     Dates: start: 20210405
  8. PANTOPRAZOLE TAB 40MG [Concomitant]
     Dates: start: 20210302

REACTIONS (1)
  - Death [None]

NARRATIVE: CASE EVENT DATE: 20210616
